FAERS Safety Report 18572103 (Version 1)
Quarter: 2020Q4

REPORT INFORMATION
  Report Type: Spontaneous
  Country: US (occurrence: US)
  Receive Date: 20201203
  Receipt Date: 20201203
  Transmission Date: 20210114
  Serious: Yes (Hospitalization, Other)
  Sender: FDA-Public Use
  Company Number: US-APOTEX-2020AP022747

PATIENT
  Age: 23 Year
  Sex: Male

DRUGS (5)
  1. ZIPRASIDONE. [Interacting]
     Active Substance: ZIPRASIDONE
     Indication: SCHIZOPHRENIA
     Dosage: 80 MILLIGRAM, BID
     Route: 065
  2. GREEN TEA EXTRACT (DIETARY SUPPLEMENT) [Interacting]
     Active Substance: DIETARY SUPPLEMENT
     Indication: WEIGHT LOSS DIET
     Dosage: 6 PILLS (THE RECOMMENDED DAILY DOSE 4 PILLS)
     Route: 065
  3. RISPERIDONE. [Suspect]
     Active Substance: RISPERIDONE
     Indication: SCHIZOPHRENIA
     Dosage: 2 MILLIGRAM, QD
     Route: 065
  4. ZIPRASIDONE. [Interacting]
     Active Substance: ZIPRASIDONE
     Dosage: 40 MILLIGRAM, BID
     Route: 065
  5. ZIPRASIDONE. [Interacting]
     Active Substance: ZIPRASIDONE
     Dosage: 20 DOSAGE FORM
     Route: 065

REACTIONS (9)
  - Paranoia [Recovered/Resolved]
  - Delusion [Recovered/Resolved]
  - Psychotic disorder [Recovered/Resolved]
  - Psychiatric decompensation [Recovered/Resolved]
  - Weight increased [Unknown]
  - Hallucination, auditory [Recovered/Resolved]
  - Intentional overdose [Unknown]
  - Herbal interaction [Unknown]
  - Therapeutic product effect decreased [Unknown]
